FAERS Safety Report 8766502 (Version 1)
Quarter: 2012Q4

REPORT INFORMATION
  Report Type: 
  Country: US (occurrence: US)
  Receive Date: 20120904
  Receipt Date: 20120904
  Transmission Date: 20130627
  Serious: Yes (Death)
  Sender: FDA-Public Use
  Company Number: US-ROCHE-CID000000002091173

PATIENT
  Sex: Female

DRUGS (4)
  1. TARCEVA [Suspect]
     Indication: PRODUCT USED FOR UNKNOWN INDICATION
     Route: 065
  2. AVASTIN [Suspect]
     Indication: GENITAL NEOPLASM MALIGNANT FEMALE
     Route: 065
  3. XELODA [Suspect]
     Indication: GENITAL NEOPLASM MALIGNANT FEMALE
     Route: 065
  4. XELODA [Suspect]
     Indication: VULVAL CANCER

REACTIONS (1)
  - Death [Fatal]
